FAERS Safety Report 8470766-2 (Version None)
Quarter: 2012Q2

REPORT INFORMATION
  Report Type: 
  Country: None (occurrence: None)
  Receive Date: 20120627
  Receipt Date: 20120618
  Transmission Date: 20120825
  Serious: Yes (Hospitalization)
  Sender: FDA-Public Use
  Company Number: US-BAYER-2012-062404

PATIENT
  Age: 17 Year
  Sex: Female
  Weight: 69.9 kg

DRUGS (24)
  1. YASMIN [Suspect]
     Indication: DYSMENORRHOEA
  2. ACETAMINOPHEN [Concomitant]
     Dosage: 650 MG,EVERY 4 HOURS
  3. DILAUDID [Concomitant]
     Dosage: 3 MG, TAB 2-4MG EVERY 3 HOURS AS NEEDED
     Dates: start: 20050218
  4. BENADRYL [Concomitant]
     Indication: PRURITUS
     Dosage: 25-50MG Q6HR PRN; 25MG EVERY 6 HOURS AS NEEDED
     Route: 040
  5. ALBUTEROL [Concomitant]
  6. CELEBREX [Concomitant]
     Dosage: 200 MG, TWICE DAILY
     Route: 048
     Dates: start: 20050406, end: 20050408
  7. BUPIVACAINE HCL [Concomitant]
     Dosage: 500 MG, UNK
     Dates: start: 20050401
  8. OXYCODONE HCL [Concomitant]
     Dosage: 5 TO 15MG EVERY 3 HOURS AS NEEDED; 5MG TO 20MG EVERY 3 HOURS AS NEEDED; 5MG CAPSULES TK 2 CS (CAPSUL
     Route: 048
     Dates: start: 20050413
  9. SENNA-S [Concomitant]
     Dosage: 2 TWICE DAILY
     Route: 048
     Dates: start: 20050408
  10. DULCOLAX [Concomitant]
     Indication: CONSTIPATION
     Dosage: 100MG TWICE DAILY; 10MG 2 TIMES DAILY AS NEEDED
     Route: 048
     Dates: start: 20050219
  11. BUPIVACAINE HCL [Concomitant]
     Dosage: 500 MG, UNK
     Dates: start: 20050401
  12. OXYCODONE HCL [Concomitant]
     Indication: PAIN
     Dosage: 5 TO 15MG EVERY 3 HOURS AS NEEDED; 5MG TO 20MG EVERY 3 HOURS AS NEEDED; 5MG CAPSULES TK 2 CS (CAPSUL
     Route: 048
     Dates: start: 20050406, end: 20050408
  13. BENADRYL [Concomitant]
     Indication: INSOMNIA
  14. DULCOLAX [Concomitant]
     Dosage: 100MG TWICE DAILY; 10MG 2 TIMES DAILY AS NEEDED
     Route: 054
     Dates: start: 20050407
  15. ATIVAN [Concomitant]
     Indication: ANXIETY
     Dosage: 2 MG, PRN Q 6-8 HOUR
     Route: 040
     Dates: start: 20050404
  16. DICLOXACILLIN [Concomitant]
     Dosage: 500 MG, QID
     Route: 048
     Dates: start: 20050131
  17. DILAUDID [Concomitant]
     Indication: PAIN
     Dosage: 1 MG, TAB 2-4MG EVERY 3 HOURS AS NEEDED
     Route: 040
     Dates: start: 20050217
  18. DILAUDID [Concomitant]
     Dosage: 0.2 MG, TAB 2-4MG EVERY 3 HOURS AS NEEDED
     Dates: start: 20050219
  19. YASMIN [Suspect]
     Indication: CONTRACEPTION
  20. ACETAMINOPHEN [Concomitant]
     Dosage: 650 MG, EVERY 6 HOURS
  21. CELEBREX [Concomitant]
     Dosage: 400 MG, ONCE DAILY
     Route: 048
     Dates: start: 20050406, end: 20050408
  22. HYDROMORPHONE HCL [Concomitant]
     Dosage: 3 MG, UNK
     Dates: start: 20050405
  23. PHENERGAN [Concomitant]
     Indication: NAUSEA
     Dosage: 12.5 TO 25MG EVERY 6 HOURS AS NEEDED
     Route: 048
     Dates: start: 20050408
  24. HYDROMORPHONE HCL [Concomitant]
     Dosage: 3 MG, UNK
     Dates: start: 20050401

REACTIONS (2)
  - DEEP VEIN THROMBOSIS [None]
  - PULMONARY EMBOLISM [None]
